FAERS Safety Report 4700350-5 (Version None)
Quarter: 2005Q2

REPORT INFORMATION
  Report Type: 
  Country: None (occurrence: None)
  Receive Date: 20050624
  Receipt Date: 20040511
  Transmission Date: 20051028
  Serious: Yes (Life-Threatening, Hospitalization)
  Sender: FDA-Public Use
  Company Number: 360699

PATIENT
  Age: 82 Year
  Sex: Female
  Weight: 80.7 kg

DRUGS (12)
  1. XELODA [Suspect]
     Indication: COLON CANCER
     Dosage: 2000 MG 2 PER DAY ORAL
     Route: 048
     Dates: start: 20031207, end: 20031221
  2. IRON (IRON NOS) [Concomitant]
  3. BEROCCA (ASCORBIC ACID/CALCIUM PANTOTHENATE/CYANOCOBALAMIN/FOLIC ACID/ [Concomitant]
  4. FOLIC ACID [Concomitant]
  5. HYDROCHLOROTHIAZIDE [Concomitant]
  6. CARTIA (ASPIRIN OR DILTIAZEM HYDROCHLORIDE) [Concomitant]
  7. K-DUR 10 [Concomitant]
  8. ZOLOFT [Concomitant]
  9. ZOCOR [Concomitant]
  10. ALLEGRA [Concomitant]
  11. VITAMINS NOS (MULTIVITAMIN NOS) [Concomitant]
  12. SUPPLEMENTS (SUPPLEMENTS) [Concomitant]

REACTIONS (13)
  - ANAEMIA [None]
  - ASTHENIA [None]
  - BLOOD GLUCOSE INCREASED [None]
  - BODY TEMPERATURE INCREASED [None]
  - CARDIAC ENZYMES INCREASED [None]
  - DEHYDRATION [None]
  - DIARRHOEA [None]
  - EXCORIATION [None]
  - HYPOTENSION [None]
  - MYOCARDIAL INFARCTION [None]
  - SYNCOPE [None]
  - TROPONIN INCREASED [None]
  - WEIGHT DECREASED [None]
